FAERS Safety Report 17862231 (Version 1)
Quarter: 2020Q2

REPORT INFORMATION
  Report Type: Spontaneous
  Country: US (occurrence: US)
  Receive Date: 20200604
  Receipt Date: 20200604
  Transmission Date: 20200714
  Serious: No
  Sender: FDA-Public Use
  Company Number: US-UNITED THERAPEUTICS-UNT-2020-007589

PATIENT
  Sex: Female

DRUGS (2)
  1. REMODULIN [Suspect]
     Active Substance: TREPROSTINIL
     Indication: PULMONARY ARTERIAL HYPERTENSION
     Dosage: UNK UNK, CONTINUING
     Route: 041
     Dates: start: 20181101
  2. REMODULIN [Suspect]
     Active Substance: TREPROSTINIL
     Dosage: 0.12 ?G/KG, CONTINUING
     Route: 041

REACTIONS (7)
  - Headache [Unknown]
  - Abdominal pain upper [Unknown]
  - Fatigue [Unknown]
  - Peripheral swelling [Unknown]
  - Swelling face [Unknown]
  - Diarrhoea [Unknown]
  - Gastrooesophageal reflux disease [Unknown]
